FAERS Safety Report 5268027-8 (Version None)
Quarter: 2007Q1

REPORT INFORMATION
  Report Type: 
  Country: None (occurrence: None)
  Receive Date: 20070319
  Receipt Date: 20070307
  Transmission Date: 20070707
  Serious: Yes (Disabling, Other)
  Sender: FDA-Public Use
  Company Number: PHRM2007FR01009

PATIENT
  Age: 69 Year
  Sex: Female
  Weight: 87 kg

DRUGS (4)
  1. ZOMETA [Suspect]
     Indication: MULTIPLE MYELOMA
     Route: 042
     Dates: start: 20030601, end: 20050101
  2. ALKERAN [Concomitant]
     Indication: MULTIPLE MYELOMA
     Dates: start: 20020101
  3. CORTANCYL [Concomitant]
     Indication: MULTIPLE MYELOMA
  4. AREDIA [Suspect]
     Indication: MULTIPLE MYELOMA
     Route: 042
     Dates: start: 20020101, end: 20030501

REACTIONS (3)
  - OSTEONECROSIS [None]
  - PATHOLOGICAL FRACTURE [None]
  - PSEUDARTHROSIS [None]
